FAERS Safety Report 11281753 (Version 2)
Quarter: 2015Q3

REPORT INFORMATION
  Report Type: Report from Study
  Country: US (occurrence: US)
  Receive Date: 20150717
  Receipt Date: 20150810
  Transmission Date: 20151125
  Serious: Yes (Hospitalization)
  Sender: FDA-Public Use
  Company Number: US-ACTELION-A-NJ2015-120935

PATIENT
  Age: 53 Year
  Sex: Female

DRUGS (2)
  1. TRACLEER [Suspect]
     Active Substance: BOSENTAN
     Indication: PULMONARY ARTERIAL HYPERTENSION
     Dosage: 125 MG, BID
     Route: 048
     Dates: end: 20150721
  2. XARELTO [Concomitant]
     Active Substance: RIVAROXABAN

REACTIONS (3)
  - Pulmonary arterial hypertension [Not Recovered/Not Resolved]
  - Right ventricular failure [Not Recovered/Not Resolved]
  - Lung transplant [Unknown]

NARRATIVE: CASE EVENT DATE: 201506
